FAERS Safety Report 4450148-0 (Version None)
Quarter: 2004Q3

REPORT INFORMATION
  Report Type: 
  Country: None (occurrence: None)
  Receive Date: 20040910
  Receipt Date: 20040902
  Transmission Date: 20050211
  Serious: Yes (Hospitalization)
  Sender: FDA-Public Use
  Company Number: 2004-02915

PATIENT
  Age: 55 Year
  Sex: Male

DRUGS (1)
  1. IMMUCYST (BCG - IT (CONNAUGHT)), AVENTIS PASTEUR LTD., LOT NOT REP, I3 [Suspect]
     Indication: BLADDER CANCER
     Dosage: 81.0 MG; B.IN., BLADDER
     Dates: start: 20040817

REACTIONS (3)
  - PYREXIA [None]
  - REITER'S SYNDROME [None]
  - WHITE BLOOD CELL COUNT INCREASED [None]
